FAERS Safety Report 10291133 (Version 1)
Quarter: 2014Q3

REPORT INFORMATION
  Report Type: Spontaneous
  Country: US (occurrence: US)
  Receive Date: 20140710
  Receipt Date: 20140710
  Transmission Date: 20150326
  Serious: No
  Sender: FDA-Public Use
  Company Number: US-PURDUE-USA-2013-0104694

PATIENT
  Age: 42 Year
  Sex: Male

DRUGS (1)
  1. BUTRANS [Suspect]
     Active Substance: BUPRENORPHINE
     Indication: PAIN
     Dosage: 20 MCG/HR, EVERY FIVE DAYS
     Route: 062
     Dates: start: 201304

REACTIONS (6)
  - Product adhesion issue [Unknown]
  - Drug ineffective [Recovered/Resolved]
  - Product physical issue [Unknown]
  - Inappropriate schedule of drug administration [Unknown]
  - Neck pain [Recovered/Resolved]
  - Dermatitis contact [Unknown]

NARRATIVE: CASE EVENT DATE: 20130703
